FAERS Safety Report 7617315-6 (Version None)
Quarter: 2011Q3

REPORT INFORMATION
  Report Type: 
  Country: None (occurrence: None)
  Receive Date: 20110718
  Receipt Date: 20110708
  Transmission Date: 20111222
  Serious: Yes (Hospitalization)
  Sender: FDA-Public Use
  Company Number: PHHY2011DE62049

PATIENT
  Age: 74 Year
  Sex: Female

DRUGS (4)
  1. LAXATIVES [Concomitant]
     Dosage: UNK UKN, UNK
  2. EXELON [Suspect]
     Indication: DEMENTIA
     Dosage: 4.6 MG/24 H
     Route: 062
  3. ZOPICLON [Interacting]
     Dosage: 7.5 MG (1 DF)
     Route: 048
  4. METOPROLOL TARTRATE [Concomitant]
     Indication: HYPOTENSION
     Dosage: 95 MG, UNK

REACTIONS (4)
  - SOMNOLENCE [None]
  - DIARRHOEA [None]
  - GENERAL PHYSICAL CONDITION ABNORMAL [None]
  - WRONG TECHNIQUE IN DRUG USAGE PROCESS [None]
